FAERS Safety Report 19040556 (Version 1)
Quarter: 2021Q1

REPORT INFORMATION
  Report Type: Report from Study
  Country: US (occurrence: US)
  Receive Date: 20210323
  Receipt Date: 20210323
  Transmission Date: 20210420
  Serious: Yes (Hospitalization, Other)
  Sender: FDA-Public Use
  Company Number: US-ROCHE-2492746

PATIENT
  Age: 44 Year
  Sex: Female
  Weight: 74.4 kg

DRUGS (1)
  1. ATEZOLIZUMAB. [Suspect]
     Active Substance: ATEZOLIZUMAB
     Indication: COLORECTAL CANCER METASTATIC
     Dosage: LAST DOSE OF ATEZOLIZUMAB,PRIOR TO EVENT ONSET: 18/OCT/2018?LAST DOSE OF ATEZOLIZUMAB,PRIOR TO EVENT
     Route: 041
     Dates: start: 20181003

REACTIONS (8)
  - Gastritis [Unknown]
  - Fatigue [Recovering/Resolving]
  - Myositis [Recovering/Resolving]
  - Pneumonitis [Recovering/Resolving]
  - COVID-19 [Recovering/Resolving]
  - Vision blurred [Recovered/Resolved]
  - Dyspnoea [Recovering/Resolving]
  - Hypoxia [Recovering/Resolving]

NARRATIVE: CASE EVENT DATE: 20181030
